FAERS Safety Report 7594232-1 (Version None)
Quarter: 2011Q3

REPORT INFORMATION
  Report Type: 
  Country: None (occurrence: None)
  Receive Date: 20110706
  Receipt Date: 20110628
  Transmission Date: 20111222
  Serious: Yes (Hospitalization)
  Sender: FDA-Public Use
  Company Number: FR-GENENTECH-320231

PATIENT
  Sex: Male

DRUGS (12)
  1. RAMIPRIL [Concomitant]
     Indication: PRODUCT USED FOR UNKNOWN INDICATION
     Dosage: 1.25 MG, QAM
  2. PRAVASTATIN [Concomitant]
     Indication: PRODUCT USED FOR UNKNOWN INDICATION
     Dosage: 20 MG, QAM
  3. SYMBICORT [Concomitant]
     Indication: PRODUCT USED FOR UNKNOWN INDICATION
     Dosage: 400 A?G, BID
  4. RITUXIMAB [Suspect]
     Dosage: 890 MG, UNK
     Route: 042
     Dates: start: 20091008
  5. RITUXIMAB [Suspect]
     Dosage: 890 MG, UNK
     Route: 042
     Dates: start: 20100205, end: 20100205
  6. RITUXIMAB [Suspect]
     Dosage: 890 MG, UNK
     Route: 042
     Dates: start: 20091204
  7. AIROMIR [Concomitant]
     Indication: PRODUCT USED FOR UNKNOWN INDICATION
     Dosage: UNK
  8. LASIX [Concomitant]
     Indication: PRODUCT USED FOR UNKNOWN INDICATION
     Dosage: 20 MG, QAM
  9. RITUXIMAB [Suspect]
     Indication: B-CELL SMALL LYMPHOCYTIC LYMPHOMA STAGE II
     Dosage: 890 MG, UNK
     Route: 042
     Dates: start: 20090814
  10. PREVISCAN [Concomitant]
     Indication: PRODUCT USED FOR UNKNOWN INDICATION
     Dosage: UNK
  11. OMEPRAZOLE [Concomitant]
     Indication: PRODUCT USED FOR UNKNOWN INDICATION
     Dosage: UNK
  12. SINGULAIR [Concomitant]
     Indication: PRODUCT USED FOR UNKNOWN INDICATION
     Dosage: UNK

REACTIONS (2)
  - ACUTE RESPIRATORY FAILURE [None]
  - ACUTE INTERSTITIAL PNEUMONITIS [None]
